FAERS Safety Report 19620389 (Version 1)
Quarter: 2021Q3

REPORT INFORMATION
  Report Type: Spontaneous
  Country: US (occurrence: US)
  Receive Date: 20210727
  Receipt Date: 20210727
  Transmission Date: 20211014
  Serious: Yes (Death)
  Sender: FDA-Public Use
  Company Number: None

PATIENT
  Sex: Male

DRUGS (1)
  1. TETRABENAZINE 12.5MG TAB [Suspect]
     Active Substance: TETRABENAZINE
     Indication: EPILEPSY
     Dosage: ?          OTHER DOSE:SECTION B5;OTHER FREQUENCY:SECTION B5;?
     Route: 048
     Dates: start: 20190402

REACTIONS (1)
  - Death [None]
